FAERS Safety Report 5622162-0 (Version None)
Quarter: 2008Q1

REPORT INFORMATION
  Report Type: 
  Country: None (occurrence: None)
  Receive Date: 20080206
  Receipt Date: 20080121
  Transmission Date: 20080703
  Serious: Yes (Disabling)
  Sender: FDA-Public Use
  Company Number: UKO080000098

PATIENT
  Age: 60 Year
  Sex: Female

DRUGS (1)
  1. PEPTO-BISMOL STOMACH MEDICINE(BISMUTH SUBSALICYLATE 262 MG) LIQUID, 15 [Suspect]
     Dosage: 30 ML, 1 ONLY, ORAL
     Route: 048
     Dates: start: 20071206, end: 20071206

REACTIONS (6)
  - ASTHENIA [None]
  - DIARRHOEA [None]
  - FEAR [None]
  - PARAESTHESIA [None]
  - TEARFULNESS [None]
  - TREMOR [None]
